FAERS Safety Report 18139148 (Version 1)
Quarter: 2020Q3

REPORT INFORMATION
  Report Type: Spontaneous
  Country: ES (occurrence: ES)
  Receive Date: 20200812
  Receipt Date: 20200812
  Transmission Date: 20201103
  Serious: Yes (Hospitalization)
  Sender: FDA-Public Use
  Company Number: ES-TEVA-2020-ES-1813112

PATIENT
  Age: 30 Year
  Sex: Female

DRUGS (3)
  1. FLUCONAZOL (2432A) [Suspect]
     Active Substance: FLUCONAZOLE
     Dosage: 800 MILLIGRAM DAILY;
     Route: 065
     Dates: start: 20191118, end: 20191120
  2. PARACETAMOL (12A) [Suspect]
     Active Substance: ACETAMINOPHEN
     Indication: PAIN
     Dosage: 3 GRAM DAILY; 1GR EVERY 8 HOURS,
     Route: 042
     Dates: start: 20191111, end: 20191122
  3. METAMIZOL (111A) [Suspect]
     Active Substance: METAMIZOL SODIUM
     Indication: PAIN
     Dosage: 6 GRAM DAILY; 2 GR EACH 8 H
     Route: 042
     Dates: start: 20191111, end: 20191119

REACTIONS (1)
  - Acute generalised exanthematous pustulosis [Recovered/Resolved]

NARRATIVE: CASE EVENT DATE: 20191118
